FAERS Safety Report 5331242-9 (Version None)
Quarter: 2007Q2

REPORT INFORMATION
  Report Type: 
  Country: None (occurrence: None)
  Receive Date: 20070227
  Receipt Date: 20060105
  Transmission Date: 20071010
  Serious: Yes (Other)
  Sender: FDA-Public Use
  Company Number: 431184

PATIENT
  Age: 47 Year
  Sex: Female
  Weight: 69.9 kg

DRUGS (3)
  1. ACCUTANE [Suspect]
     Indication: CUTANEOUS SARCOIDOSIS
     Dosage: 40 MG DAILY ORAL
     Route: 048
     Dates: start: 20050103, end: 20050118
  2. PREDNISONE TAB [Concomitant]
  3. DOXYCYCLINE [Concomitant]

REACTIONS (2)
  - ARTHRALGIA [None]
  - MYALGIA [None]
